FAERS Safety Report 9914606 (Version 2)
Quarter: 2014Q2

REPORT INFORMATION
  Report Type: Spontaneous
  Country: US (occurrence: US)
  Receive Date: 20140220
  Receipt Date: 20140416
  Transmission Date: 20141212
  Serious: No
  Sender: FDA-Public Use
  Company Number: US-009507513-1402USA010010

PATIENT
  Age: 71 Year
  Sex: Female
  Weight: 86.17 kg

DRUGS (2)
  1. OXYTROL FOR WOMEN [Suspect]
     Indication: POLLAKIURIA
     Dosage: UNK, UNKNOWN
     Route: 062
     Dates: start: 20140101, end: 20140314
  2. METFORMIN [Concomitant]
     Indication: TYPE 2 DIABETES MELLITUS
     Dosage: UNK, UNKNOWN

REACTIONS (5)
  - Skin irritation [Unknown]
  - Erythema [Unknown]
  - Pruritus [Unknown]
  - Rash [Unknown]
  - Off label use [Unknown]
